FAERS Safety Report 25746828 (Version 1)
Quarter: 2025Q3

REPORT INFORMATION
  Report Type: Spontaneous
  Country: CN (occurrence: CN)
  Receive Date: 20250901
  Receipt Date: 20250901
  Transmission Date: 20251020
  Serious: Yes (Hospitalization, Disabling)
  Sender: NOVARTIS
  Company Number: CN-002147023-NVSC2025CN132634

PATIENT
  Age: 40 Year
  Sex: Female
  Weight: 54.5 kg

DRUGS (3)
  1. TEGRETOL [Suspect]
     Active Substance: CARBAMAZEPINE
     Indication: Neuralgia
     Dosage: 0.100 G, BID
     Route: 048
     Dates: start: 20250717, end: 20250719
  2. LORATADINE [Concomitant]
     Active Substance: LORATADINE
     Indication: Product used for unknown indication
     Dosage: 10 MG, QD
     Route: 048
  3. MIZOLASTINE [Concomitant]
     Active Substance: MIZOLASTINE
     Indication: Product used for unknown indication
     Route: 048
     Dates: start: 20250730

REACTIONS (16)
  - Erythema multiforme [Recovering/Resolving]
  - Rash maculo-papular [Recovering/Resolving]
  - Blister [Recovering/Resolving]
  - Pruritus [Recovering/Resolving]
  - Oropharyngeal pain [Recovering/Resolving]
  - Hypoaesthesia oral [Recovering/Resolving]
  - Mucosal ulceration [Recovering/Resolving]
  - Lip swelling [Recovering/Resolving]
  - Blood pressure decreased [Unknown]
  - Heart rate increased [Unknown]
  - Vulval ulceration [Unknown]
  - Dysuria [Unknown]
  - Tooth erosion [Unknown]
  - HLA-B*1502 assay positive [Unknown]
  - Mouth swelling [Unknown]
  - Discomfort [Unknown]

NARRATIVE: CASE EVENT DATE: 20250806
